FAERS Safety Report 16388476 (Version 1)
Quarter: 2019Q3

REPORT INFORMATION
  Report Type: Spontaneous
  Country: US (occurrence: US)
  Receive Date: 20190601
  Receipt Date: 20190601
  Transmission Date: 20191004
  Serious: Yes (Disabling, Other)
  Sender: FDA-Public Use
  Company Number: None

PATIENT
  Age: 17 Year
  Sex: Female
  Weight: 54.45 kg

DRUGS (2)
  1. ORTHO TRI-CYCLEN(TRIPHASIC BIRTH CONTROL) [Concomitant]
  2. ZICAM COLD REMEDY NASAL SWABS (HOMEOPATHICS) [Suspect]
     Active Substance: HOMEOPATHICS\ZINC ACETATE\ZINC GLUCONATE
     Indication: NASOPHARYNGITIS
     Dosage: ?          QUANTITY:1 TUBE;OTHER ROUTE:SWABBED IN NOSTRIL?
     Dates: start: 20111214, end: 20111217

REACTIONS (1)
  - Anosmia [None]

NARRATIVE: CASE EVENT DATE: 20111216
